FAERS Safety Report 17466546 (Version 1)
Quarter: 2020Q1

REPORT INFORMATION
  Report Type: Spontaneous
  Country: US (occurrence: US)
  Receive Date: 20200227
  Receipt Date: 20200227
  Transmission Date: 20200409
  Serious: Yes (Death, Other)
  Sender: FDA-Public Use
  Company Number: US-REGULIS-2080999

PATIENT
  Age: 19 Year
  Sex: Male

DRUGS (3)
  1. METHYLENE BLUE. [Suspect]
     Active Substance: METHYLENE BLUE
     Route: 065
  2. SODIUM NITRITE [Suspect]
     Active Substance: SODIUM NITRITE
     Route: 048
  3. MIDAZOLAM HYDROCHLORIDE. [Suspect]
     Active Substance: MIDAZOLAM HYDROCHLORIDE
     Route: 065

REACTIONS (2)
  - Cardiac arrest [Fatal]
  - Bradycardia [Unknown]
